FAERS Safety Report 15999617 (Version 1)
Quarter: 2019Q1

REPORT INFORMATION
  Report Type: Spontaneous
  Country: NL (occurrence: NL)
  Receive Date: 20190225
  Receipt Date: 20190225
  Transmission Date: 20190418
  Serious: Yes (Other)
  Sender: FDA-Public Use
  Company Number: NL-ROCHE-2269257

PATIENT
  Sex: Male

DRUGS (1)
  1. CLONAZEPAM. [Suspect]
     Active Substance: CLONAZEPAM
     Indication: SOCIAL ANXIETY DISORDER
     Route: 065

REACTIONS (6)
  - Intentional product use issue [Unknown]
  - Visual perseveration [Unknown]
  - Bruxism [Unknown]
  - Mydriasis [Unknown]
  - Off label use [Unknown]
  - Hypervigilance [Unknown]
